FAERS Safety Report 6447115-4 (Version None)
Quarter: 2009Q4

REPORT INFORMATION
  Report Type: 
  Country: None (occurrence: None)
  Receive Date: 20091119
  Receipt Date: 20091116
  Transmission Date: 20100525
  Serious: Yes (Hospitalization)
  Sender: FDA-Public Use
  Company Number: IT-PFIZER INC-2009277984

PATIENT
  Age: 70 Year
  Sex: Female

DRUGS (2)
  1. TOTALIP [Suspect]
     Indication: HYPERCHOLESTEROLAEMIA
     Dosage: 40 MG, 1X/DAY
     Route: 048
     Dates: start: 20090828, end: 20090913
  2. PERINDOPRIL ERBUMINE/INDAPAMIDE HEMIHYDRATE [Concomitant]

REACTIONS (5)
  - AGITATION [None]
  - BLOOD CREATINE PHOSPHOKINASE INCREASED [None]
  - CONFUSIONAL STATE [None]
  - MYOGLOBINAEMIA [None]
  - VOMITING [None]
